FAERS Safety Report 20765301 (Version 1)
Quarter: 2022Q2

REPORT INFORMATION
  Report Type: Spontaneous
  Country: None (occurrence: GB)
  Receive Date: 20220428
  Receipt Date: 20220428
  Transmission Date: 20220720
  Serious: Yes (Death, Other)
  Sender: FDA-Public Use
  Company Number: GB-MHRA-ADR 26779838

PATIENT
  Age: 76 Year
  Sex: Female

DRUGS (2)
  1. OXYGEN [Suspect]
     Active Substance: OXYGEN
     Indication: Product used for unknown indication
     Dates: start: 20220104
  2. UNSPECIFIED INGREDIENT [Concomitant]
     Active Substance: UNSPECIFIED INGREDIENT
     Dates: start: 20220104

REACTIONS (4)
  - Death [Fatal]
  - Hypercapnia [Fatal]
  - Unresponsive to stimuli [Fatal]
  - Agonal respiration [Fatal]

NARRATIVE: CASE EVENT DATE: 20220104
